FAERS Safety Report 11432048 (Version 6)
Quarter: 2016Q1

REPORT INFORMATION
  Report Type: Spontaneous
  Country: IN (occurrence: IN)
  Receive Date: 20150828
  Receipt Date: 20160111
  Transmission Date: 20160525
  Serious: Yes (Other)
  Sender: FDA-Public Use
  Company Number: IN-PFIZER INC-2015248805

PATIENT
  Age: 78 Year
  Sex: Male

DRUGS (3)
  1. SUTENT [Suspect]
     Active Substance: SUNITINIB MALATE
     Indication: METASTATIC RENAL CELL CARCINOMA
     Dosage: 50 MG, CYCLIC (ONCE DAILY, 2 WEEKS ON/1 WEEK OFF)
     Route: 048
     Dates: start: 20150525
  2. SUTENT [Suspect]
     Active Substance: SUNITINIB MALATE
     Dosage: 25 MG, 1X/DAY
     Route: 048
     Dates: start: 201509, end: 201512
  3. SUTENT [Suspect]
     Active Substance: SUNITINIB MALATE
     Dosage: 37.5 MG, CYCLIC, FOR A WEEK
     Route: 048

REACTIONS (13)
  - Pain in extremity [Recovered/Resolved]
  - Wound [Not Recovered/Not Resolved]
  - Impaired healing [Not Recovered/Not Resolved]
  - Peripheral swelling [Recovered/Resolved]
  - Yellow skin [Recovered/Resolved]
  - Dry skin [Recovered/Resolved]
  - Blister infected [Recovered/Resolved]
  - Dysgeusia [Recovered/Resolved]
  - Liver disorder [Recovering/Resolving]
  - Rash [Recovered/Resolved]
  - Abasia [Unknown]
  - Blister [Recovered/Resolved]
  - Erythema [Recovering/Resolving]

NARRATIVE: CASE EVENT DATE: 2015
